FAERS Safety Report 17859356 (Version 1)
Quarter: 2020Q2

REPORT INFORMATION
  Report Type: Spontaneous
  Country: US (occurrence: US)
  Receive Date: 20200603
  Receipt Date: 20200603
  Transmission Date: 20200714
  Serious: Yes (Hospitalization)
  Sender: FDA-Public Use
  Company Number: None

PATIENT
  Age: 56 Year
  Sex: Male

DRUGS (10)
  1. GEMFIBROZIL. [Suspect]
     Active Substance: GEMFIBROZIL
  2. TYLENOL [Suspect]
     Active Substance: ACETAMINOPHEN
  3. HYDROCHLOROT [Suspect]
     Active Substance: HYDROCHLOROTHIAZIDE
  4. B12 ACTIVE [Concomitant]
  5. LISINOPRIL. [Suspect]
     Active Substance: LISINOPRIL
  6. HUMIRA [Suspect]
     Active Substance: ADALIMUMAB
     Indication: RHEUMATOID ARTHRITIS
     Dosage: ?          OTHER FREQUENCY:QOWK;?
     Route: 058
     Dates: start: 20140601
  7. ATORVASTATIN [Suspect]
     Active Substance: ATORVASTATIN
  8. CEFDINIR. [Suspect]
     Active Substance: CEFDINIR
  9. METFORMIN [Suspect]
     Active Substance: METFORMIN HYDROCHLORIDE
  10. VITAMIN D [Suspect]
     Active Substance: VITAMIN D NOS

REACTIONS (2)
  - Cardiac operation [None]
  - Therapy interrupted [None]

NARRATIVE: CASE EVENT DATE: 20200602
